FAERS Safety Report 7987236-8 (Version None)
Quarter: 2011Q4

REPORT INFORMATION
  Report Type: 
  Country: None (occurrence: None)
  Receive Date: 20111216
  Receipt Date: 20111213
  Transmission Date: 20120403
  Serious: Yes (Other)
  Sender: FDA-Public Use
  Company Number: AU-JNJFOC-20111206144

PATIENT
  Sex: Male

DRUGS (5)
  1. STELARA [Suspect]
     Route: 058
     Dates: start: 20111016
  2. STELARA [Suspect]
     Route: 058
     Dates: start: 20110724
  3. STELARA [Suspect]
     Dosage: 5 INJECTIONS TOTAL
     Route: 058
     Dates: start: 20110109
  4. STELARA [Suspect]
     Indication: PSORIASIS
     Route: 058
     Dates: start: 20110501
  5. STELARA [Suspect]
     Route: 058
     Dates: start: 20110206

REACTIONS (1)
  - TACHYARRHYTHMIA [None]
